FAERS Safety Report 6712852-0 (Version None)
Quarter: 2010Q2

REPORT INFORMATION
  Report Type: 
  Country: None (occurrence: None)
  Receive Date: 20100506
  Receipt Date: 20100503
  Transmission Date: 20101027
  Serious: Yes (Hospitalization)
  Sender: FDA-Public Use
  Company Number: FR-BRISTOL-MYERS SQUIBB COMPANY-14213474

PATIENT
  Age: 36 Year
  Sex: Female

DRUGS (1)
  1. ORENCIA [Suspect]
     Indication: RHEUMATOID ARTHRITIS
     Dosage: 22-OCT-2007, 13-NOV-2007 FOR A TOTAL OF 3 INFUSIONS
     Route: 042
     Dates: start: 20071008

REACTIONS (1)
  - LUNG DISORDER [None]
